FAERS Safety Report 4732231-5 (Version None)
Quarter: 2005Q3

REPORT INFORMATION
  Report Type: 
  Country: None (occurrence: None)
  Receive Date: 20050802
  Receipt Date: 20050725
  Transmission Date: 20060218
  Serious: Yes (Death, Hospitalization)
  Sender: FDA-Public Use
  Company Number: FR-MERCK-0507FRA00085

PATIENT
  Age: 81 Year
  Sex: Female
  Weight: 77 kg

DRUGS (4)
  1. CANCIDAS [Suspect]
     Route: 042
     Dates: start: 20050611, end: 20050623
  2. DALFOPRISTIN AND QUINUPRISTIN [Suspect]
     Indication: ENDOCARDITIS
     Route: 042
     Dates: end: 20050623
  3. TEICOPLANIN [Suspect]
     Indication: ENDOCARDITIS
     Route: 042
     Dates: start: 20050608, end: 20050626
  4. PANTOPRAZOLE [Suspect]
     Route: 042

REACTIONS (2)
  - HEPATIC FAILURE [None]
  - LACTIC ACIDOSIS [None]
